FAERS Safety Report 23912288 (Version 2)
Quarter: 2024Q4

REPORT INFORMATION
  Report Type: Other
  Country: NL (occurrence: NL)
  Receive Date: 20240528
  Receipt Date: 20241230
  Transmission Date: 20250115
  Serious: Yes (Hospitalization)
  Sender: B BRAUN
  Company Number: NL-B.Braun Medical Inc.-2157491

PATIENT
  Age: 75 Year
  Sex: Male

DRUGS (3)
  1. ACETAMINOPHEN [Suspect]
     Active Substance: ACETAMINOPHEN
     Indication: Staphylococcal bacteraemia
  2. FLUCLOXACILLIN [Suspect]
     Active Substance: FLUCLOXACILLIN
  3. RIFAMPIN [Concomitant]
     Active Substance: RIFAMPIN

REACTIONS (2)
  - Metabolic acidosis [Unknown]
  - Off label use [Unknown]
